FAERS Safety Report 14488635 (Version 5)
Quarter: 2019Q1

REPORT INFORMATION
  Report Type: Report from Study
  Country: US (occurrence: US)
  Receive Date: 20180205
  Receipt Date: 20190221
  Transmission Date: 20190417
  Serious: Yes (Hospitalization)
  Sender: FDA-Public Use
  Company Number: US-ACTELION-A-NJ2018-166949

PATIENT
  Age: 55 Year
  Sex: Male
  Weight: 151.47 kg

DRUGS (4)
  1. REVATIO [Concomitant]
     Active Substance: SILDENAFIL CITRATE
  2. XARELTO [Concomitant]
     Active Substance: RIVAROXABAN
  3. OPSUMIT [Suspect]
     Active Substance: MACITENTAN
     Indication: PULMONARY ARTERIAL HYPERTENSION
     Dosage: 10 MG, QD
     Route: 048
  4. NIFEDIPINE. [Concomitant]
     Active Substance: NIFEDIPINE

REACTIONS (9)
  - Cellulitis [Unknown]
  - Haemoglobin decreased [Unknown]
  - Transfusion [Unknown]
  - Blood creatinine increased [Unknown]
  - Cardiac failure congestive [Unknown]
  - Urticaria [Unknown]
  - Dizziness [Unknown]
  - Fluid retention [Unknown]
  - Product dose omission [Unknown]

NARRATIVE: CASE EVENT DATE: 201803
